FAERS Safety Report 7500456-1 (Version None)
Quarter: 2011Q2

REPORT INFORMATION
  Report Type: 
  Country: None (occurrence: None)
  Receive Date: 20110524
  Receipt Date: 20110429
  Transmission Date: 20111010
  Serious: No
  Sender: FDA-Public Use
  Company Number: US-BRISTOL-MYERS SQUIBB COMPANY-15645534

PATIENT
  Age: 70 Year
  Sex: Male

DRUGS (10)
  1. VERPAMIL HCL [Concomitant]
  2. ASPIRIN [Concomitant]
  3. AMITRIPTYLINE HCL [Concomitant]
  4. METOPROLOL [Concomitant]
  5. PRILOSEC [Concomitant]
  6. ACTOS [Concomitant]
  7. ZETIA [Concomitant]
  8. ONGLYZA [Suspect]
     Indication: DIABETES MELLITUS
     Dosage: STARTED AS 5MG AND REDUCED TO 2.5MG
  9. LIPITOR [Concomitant]
  10. GABAPENTIN [Concomitant]

REACTIONS (1)
  - DRUG INEFFECTIVE [None]
